FAERS Safety Report 17456272 (Version 1)
Quarter: 2020Q1

REPORT INFORMATION
  Report Type: Spontaneous
  Country: US (occurrence: US)
  Receive Date: 20200225
  Receipt Date: 20200225
  Transmission Date: 20200409
  Serious: No
  Sender: FDA-Public Use
  Company Number: None

PATIENT
  Age: 68 Year
  Sex: Male
  Weight: 90 kg

DRUGS (2)
  1. GAMUNEX [Suspect]
     Active Substance: HUMAN IMMUNOGLOBULIN G
     Indication: CHRONIC INFLAMMATORY DEMYELINATING POLYRADICULONEUROPATHY
     Dosage: ?          OTHER FREQUENCY:EVERY WEEK;?
     Route: 041
     Dates: start: 20200223, end: 20200224
  2. GAMUNEX C 10 % [Concomitant]
     Dates: start: 20200223, end: 20200224

REACTIONS (2)
  - Pyrexia [None]
  - Infusion related reaction [None]

NARRATIVE: CASE EVENT DATE: 20200224
